FAERS Safety Report 15348499 (Version 2)
Quarter: 2018Q4

REPORT INFORMATION
  Report Type: Report from Study
  Country: CA (occurrence: CA)
  Receive Date: 20180904
  Receipt Date: 20181130
  Transmission Date: 20190204
  Serious: Yes (Other)
  Sender: FDA-Public Use
  Company Number: CA-JNJFOC-20180841044

PATIENT
  Age: 63 Year
  Sex: Female
  Weight: 73.5 kg

DRUGS (26)
  1. NOVOLIN [Concomitant]
     Active Substance: INSULIN HUMAN
     Dosage: INJECT 26 UNITS SC ONCE A DAY IN THE MORNING
     Route: 058
  2. D-TABS [Concomitant]
     Active Substance: CHOLECALCIFEROL
     Route: 065
  3. TOVIAZ [Concomitant]
     Active Substance: FESOTERODINE FUMARATE
     Dosage: TAKE 1 TAB ONCE A DAY, SAME HOUR EVERY DAY
     Route: 065
  4. APO METOPROLOL [Concomitant]
     Active Substance: METOPROLOL
     Dosage: 1 TABLET TWICE A DAY IN THE MORNING AND EVENING
     Route: 065
  5. MAGNESIUM [Concomitant]
     Active Substance: MAGNESIUM
     Dosage: TAKE 2 TAB (1G) TWICE A DAY IN MORNING AND EVENING WITH MEAL
     Route: 065
  6. ROSUVASTATIN. [Concomitant]
     Active Substance: ROSUVASTATIN
     Dosage: REGULARLY
     Route: 065
  7. APO-FUROSEMIDE [Concomitant]
     Active Substance: FUROSEMIDE
     Dosage: TAKE 1 TAB TWICE A DAY IN THE MORNING AND AT 04:00 PM
     Route: 065
  8. FOLIC ACID. [Concomitant]
     Active Substance: FOLIC ACID
     Dosage: TAKE 1 TAB ONCE A DAY 6 DAYS OUT OF 7
     Route: 065
  9. RESTASIS [Concomitant]
     Active Substance: CYCLOSPORINE
     Dosage: PLACE 1 DROP TWICE A DAY IN BOTH EYES EVERY 12 HOURS
     Route: 065
  10. REMICADE [Suspect]
     Active Substance: INFLIXIMAB
     Indication: RHEUMATOID ARTHRITIS
     Route: 042
  11. REPAGLINIDE. [Concomitant]
     Active Substance: REPAGLINIDE
     Dosage: TAKE 1 TAB ONCE A DAY IN THE MORNING AT THE START OF THE MEAL
     Route: 065
  12. PREGABALIN. [Concomitant]
     Active Substance: PREGABALIN
     Dosage: TAKE 1 CAPSULE ONCE A DAY AT BEDTIME IF WELL TOLERATED OTHERWISE 50 MG
     Route: 065
  13. REPAGLINIDE. [Concomitant]
     Active Substance: REPAGLINIDE
     Dosage: TAKE 2 TAB ONCE A DAY IN THE MORNING AT THE START OF THE MEAL DOSE INCREASED
     Route: 065
  14. ACETAMINOPHEN. [Concomitant]
     Active Substance: ACETAMINOPHEN
     Indication: PAIN
     Dosage: TAKE 2 DOSES 4 TIMES A DAY EVERY 6 HOURS IF NEEDED AS PAINKILLER
     Route: 065
  15. NOVORAPID [Concomitant]
     Active Substance: INSULIN ASPART
     Dosage: INJECT 10 UNITS SC AT NOON AND 8 UNITS SC AT SUPPER TIME
     Route: 058
  16. VAGIFEM [Concomitant]
     Active Substance: ESTRADIOL
     Dosage: INSERT 1 TAB ONCE A DAY AT BEDTIME FOR 2 WEEKS, THEN 1 TAB TWICE A WEEK
     Route: 065
  17. APO-AMLODIPINE [Concomitant]
     Active Substance: AMLODIPINE BESYLATE
     Dosage: 1/2 TAB IN THE MORNING AND 1 TAB AT SUPPER TIME
     Route: 065
  18. SYNTHROID [Concomitant]
     Active Substance: LEVOTHYROXINE SODIUM
     Dosage: TAKE 1 TAB ONCE A DAY IN THE MORNING
     Route: 065
  19. ARISTOCORT [Concomitant]
     Active Substance: TRIAMCINOLONE DIACETATE
     Indication: PSORIASIS
     Dosage: LOCAL APPLICATION TWICE A DAY MORNING AND EVENING
     Route: 061
  20. APO-RAMIPRIL [Concomitant]
     Active Substance: RAMIPRIL
     Dosage: MORNING AND EVENING
     Route: 065
  21. REFRESH CELLUVISC [Concomitant]
     Active Substance: CARBOXYMETHYLCELLULOSE SODIUM
     Dosage: OPHTHALMIC SOLUTION, 4 TIMES A DAY REGULARLY OR MORE IF NEEDED
     Route: 065
  22. APO-PANTOPRAZOLE [Concomitant]
     Active Substance: PANTOPRAZOLE SODIUM
     Dosage: TAKE 1 TAB ONCE A DAY IN THE MORNING 30 MINUTES BEFORE BREAKFAST
     Route: 065
  23. APO-PREDNISONE [Concomitant]
     Active Substance: PREDNISONE
     Dosage: 1 TAB ONCE A DAY IN THE MORNING
     Route: 065
  24. SODIUM BICARBONATE. [Concomitant]
     Active Substance: SODIUM BICARBONATE
     Dosage: MORNING AND EVENING
     Route: 065
  25. HYDROMORPHONE [Concomitant]
     Active Substance: HYDROMORPHONE
     Dosage: TAKE 1/2 TAB TWICE A DAY IN THE MORNING AND EVENING IF NEEDED
  26. METHOTREXATE. [Concomitant]
     Active Substance: METHOTREXATE
     Route: 058

REACTIONS (3)
  - Bronchitis [Recovered/Resolved]
  - Hysterectomy [Unknown]
  - Renal failure [Unknown]

NARRATIVE: CASE EVENT DATE: 201807
